FAERS Safety Report 16309255 (Version 2)
Quarter: 2019Q2

REPORT INFORMATION
  Report Type: Spontaneous
  Country: US (occurrence: US)
  Receive Date: 20190514
  Receipt Date: 20190514
  Transmission Date: 20190711
  Serious: No
  Sender: FDA-Public Use
  Company Number: US-ALLERGAN-1850160US

PATIENT
  Sex: Female

DRUGS (1)
  1. ACTONEL [Suspect]
     Active Substance: RISEDRONATE SODIUM
     Indication: OSTEOPOROSIS
     Dosage: 1 DF, SINGLE
     Route: 048
     Dates: start: 20181021

REACTIONS (7)
  - Pain [Unknown]
  - Back pain [Unknown]
  - Hypersensitivity [Unknown]
  - Feeling cold [Unknown]
  - Influenza like illness [Unknown]
  - Feeling abnormal [Unknown]
  - Hyperhidrosis [Unknown]

NARRATIVE: CASE EVENT DATE: 20181021
